FAERS Safety Report 6141891-6 (Version None)
Quarter: 2009Q2

REPORT INFORMATION
  Report Type: 
  Country: None (occurrence: None)
  Receive Date: 20090402
  Receipt Date: 20090324
  Transmission Date: 20091009
  Serious: Yes (Disabling, Other)
  Sender: FDA-Public Use
  Company Number: PHHY2009GB11476

PATIENT
  Age: 59 Year
  Sex: Female

DRUGS (7)
  1. PAMIDRONATE DISODIUM [Suspect]
     Indication: MULTIPLE MYELOMA
     Dosage: 60MG EVERY MONTH
     Route: 042
     Dates: start: 20011101, end: 20080601
  2. PERINDOPRIL ERBUMINE [Concomitant]
     Dosage: 4MG
     Route: 048
  3. PHOS-EX [Concomitant]
     Indication: DIALYSIS
  4. SEVELAMER [Concomitant]
     Indication: DIALYSIS
  5. THALIDOMIDE [Concomitant]
     Indication: MULTIPLE MYELOMA
     Dosage: 100MG
     Route: 048
     Dates: start: 20080101, end: 20081201
  6. WARFARIN SODIUM [Concomitant]
     Indication: DEEP VEIN THROMBOSIS
     Dosage: UNK
     Route: 048
     Dates: start: 20080101, end: 20081201
  7. ALFACALCIDOL [Concomitant]
     Indication: DIALYSIS

REACTIONS (2)
  - OSTEONECROSIS [None]
  - PATHOLOGICAL FRACTURE [None]
